FAERS Safety Report 8608872-1 (Version None)
Quarter: 2012Q3

REPORT INFORMATION
  Report Type: 
  Country: None (occurrence: None)
  Receive Date: 20120821
  Receipt Date: 20120814
  Transmission Date: 20120928
  Serious: Yes (Other)
  Sender: FDA-Public Use
  Company Number: BR-PFIZER INC-2012198632

PATIENT
  Age: 49 Year
  Sex: Female
  Weight: 79 kg

DRUGS (1)
  1. LYRICA [Suspect]
     Indication: INTERVERTEBRAL DISC PROTRUSION
     Dosage: 2 CAPSULES OF 75 MG, DAILY
     Route: 048
     Dates: start: 20120808, end: 20120801

REACTIONS (3)
  - OFF LABEL USE [None]
  - RENAL DISORDER [None]
  - SWELLING [None]
